FAERS Safety Report 9255023 (Version 2)
Quarter: 2013Q2

REPORT INFORMATION
  Report Type: Report from Study
  Country: CA (occurrence: CA)
  Receive Date: 20130425
  Receipt Date: 20130610
  Transmission Date: 20140414
  Serious: Yes (Other)
  Sender: FDA-Public Use
  Company Number: CA-JNJFOC-20130301410

PATIENT
  Sex: Male
  Weight: 74.84 kg

DRUGS (2)
  1. REMICADE [Suspect]
     Indication: CROHN^S DISEASE
     Dosage: FEW MONTHS AGO
     Route: 042
     Dates: start: 20130107
  2. REMICADE [Suspect]
     Indication: CROHN^S DISEASE
     Dosage: WEEK 6 INFUSION
     Route: 042
     Dates: start: 20130219

REACTIONS (1)
  - Spinal column stenosis [Unknown]
